FAERS Safety Report 21407588 (Version 2)
Quarter: 2022Q4

REPORT INFORMATION
  Report Type: Report from Study
  Country: US (occurrence: US)
  Receive Date: 20221004
  Receipt Date: 20221209
  Transmission Date: 20230113
  Serious: No
  Sender: FDA-Public Use
  Company Number: US-BIOVITRUM-2022US11290

PATIENT
  Sex: Female

DRUGS (1)
  1. KINERET [Suspect]
     Active Substance: ANAKINRA
     Indication: Rheumatoid arthritis
     Dates: start: 20220812

REACTIONS (5)
  - Cough [Not Recovered/Not Resolved]
  - Diarrhoea [Unknown]
  - Impaired healing [Unknown]
  - Pain in extremity [Unknown]
  - Drug ineffective [Unknown]
